FAERS Safety Report 8288937-7 (Version None)
Quarter: 2012Q2

REPORT INFORMATION
  Report Type: 
  Country: None (occurrence: None)
  Receive Date: 20120412
  Receipt Date: 20120329
  Transmission Date: 20120825
  Serious: Yes (Death)
  Sender: FDA-Public Use
  Company Number: 2012ST000338

PATIENT
  Age: 55 Year
  Sex: Male

DRUGS (1)
  1. MATULANE [Suspect]
     Indication: HODGKIN'S DISEASE
     Dosage: 200 MG;QD;PO
     Route: 048
     Dates: start: 20110929

REACTIONS (1)
  - DEATH [None]
